FAERS Safety Report 20254840 (Version 2)
Quarter: 2022Q4

REPORT INFORMATION
  Report Type: Spontaneous
  Country: DE (occurrence: DE)
  Receive Date: 20211230
  Receipt Date: 20221103
  Transmission Date: 20230112
  Serious: Yes (Hospitalization)
  Sender: FDA-Public Use
  Company Number: DE-ADRED-07417-01

PATIENT
  Age: 72 Year
  Sex: Male
  Weight: 72 kg

DRUGS (6)
  1. ETOPOSIDE [Suspect]
     Active Substance: ETOPOSIDE
     Indication: Product used for unknown indication
     Route: 065
  2. CARBOPLATIN [Suspect]
     Active Substance: CARBOPLATIN
     Indication: Product used for unknown indication
     Route: 065
  3. TIMOLOL [Concomitant]
     Active Substance: TIMOLOL
     Indication: Product used for unknown indication
     Dosage: 2 DOSAGE FORMS DAILY; 1.25 MG/0.5ML, 1-0-1-0, SINGLE DOSE PIPETTES
     Route: 047
  4. METAMIZOL [Concomitant]
     Active Substance: METAMIZOLE SODIUM
     Indication: Product used for unknown indication
     Dosage: 80 GTT DAILY; 500 MG/ML, 20-20-20-20
     Route: 048
  5. formoterol / aclidinium bromide [Concomitant]
     Indication: Product used for unknown indication
     Dosage: 2 DOSAGE FORMS DAILY; 400|12 UG, 1-0-1-0
     Route: 055
  6. PILOCARPIN [Concomitant]
     Indication: Product used for unknown indication
     Dosage: 3 GTT DAILY; 20 MG/G, 1-1-1-0
     Route: 047

REACTIONS (5)
  - Administration site discomfort [Unknown]
  - Pain [Unknown]
  - Application site erythema [Unknown]
  - Catheter site pain [Unknown]
  - Vascular device infection [Unknown]
